FAERS Safety Report 7161740-7 (Version None)
Quarter: 2010Q4

REPORT INFORMATION
  Report Type: 
  Country: None (occurrence: None)
  Receive Date: 20101215
  Receipt Date: 20101202
  Transmission Date: 20110411
  Serious: Yes (Hospitalization, Other)
  Sender: FDA-Public Use
  Company Number: CA-ELI_LILLY_AND_COMPANY-CA201012000492

PATIENT
  Sex: Female

DRUGS (11)
  1. ZYPREXA [Suspect]
     Indication: HALLUCINATION, AUDITORY
     Dosage: 5 MG, DAILY (1/D)
     Route: 048
     Dates: start: 19990905
  2. ZYPREXA [Suspect]
     Dosage: 10 MG, DAILY (1/D)
     Route: 048
  3. ZYPREXA ZYDIS [Suspect]
     Indication: HALLUCINATION, AUDITORY
     Dosage: 5 MG, DAILY (1/D)
     Route: 048
  4. NOVO-OLANZAPINE [Concomitant]
     Dosage: 10 MG, DAILY (1/D)
     Route: 065
  5. LORAZEPAM [Concomitant]
     Dosage: 2 MG, 3/D
     Route: 048
  6. IMOVANE [Concomitant]
     Dosage: 7.5 MG, DAILY (1/D)
     Route: 048
  7. EVISTA [Concomitant]
     Dosage: 60 MG, DAILY (1/D)
     Route: 048
  8. COZAAR [Concomitant]
     Dosage: 100 MG, DAILY (1/D)
     Route: 048
  9. CITALOPRAM [Concomitant]
     Dosage: 20 MG, DAILY (1/D)
     Route: 048
  10. CYCLOBENZAPRINE [Concomitant]
     Dosage: UNK, UNKNOWN
     Route: 065
  11. APO-BENZTROPINE [Concomitant]
     Dosage: UNK, UNKNOWN
     Route: 065

REACTIONS (19)
  - BLOOD CHOLESTEROL INCREASED [None]
  - BLOOD TRIGLYCERIDES INCREASED [None]
  - BONE PAIN [None]
  - DIABETES MELLITUS [None]
  - DIZZINESS [None]
  - FALL [None]
  - GAMMA-GLUTAMYLTRANSFERASE INCREASED [None]
  - HIGH DENSITY LIPOPROTEIN DECREASED [None]
  - INFREQUENT BOWEL MOVEMENTS [None]
  - INTESTINAL OBSTRUCTION [None]
  - MICROALBUMINURIA [None]
  - NEPHROLITHIASIS [None]
  - PAIN [None]
  - PLATELET COUNT INCREASED [None]
  - SPINAL FRACTURE [None]
  - SYNCOPE [None]
  - TOTAL CHOLESTEROL/HDL RATIO DECREASED [None]
  - WEIGHT DECREASED [None]
  - WHITE BLOOD CELL COUNT INCREASED [None]
